FAERS Safety Report 5370226-1 (Version None)
Quarter: 2007Q2

REPORT INFORMATION
  Report Type: 
  Country: None (occurrence: None)
  Receive Date: 20070626
  Receipt Date: 20070619
  Transmission Date: 20071010
  Serious: Yes (Hospitalization)
  Sender: FDA-Public Use
  Company Number: NO-AMGEN-US212514

PATIENT
  Sex: Female

DRUGS (3)
  1. ENBREL [Suspect]
     Indication: RHEUMATOID ARTHRITIS
     Route: 058
     Dates: start: 20040101
  2. ZOPICLONE [Concomitant]
     Indication: INSOMNIA
     Dosage: UNSPECIFIED
     Dates: start: 20060501
  3. PARALGIN FORTE [Concomitant]
     Indication: PAIN
     Dosage: UNSPECIFIED
     Dates: start: 20060501

REACTIONS (1)
  - DRUG INEFFECTIVE [None]
